FAERS Safety Report 8829427 (Version 2)
Quarter: 2012Q4

REPORT INFORMATION
  Report Type: 
  Country: GB (occurrence: GB)
  Receive Date: 20121008
  Receipt Date: 20121221
  Transmission Date: 20130627
  Serious: Yes (Hospitalization, Other)
  Sender: FDA-Public Use
  Company Number: GB-ABBOTT-12P-167-0990876-00

PATIENT
  Sex: Female

DRUGS (7)
  1. NORVIR [Suspect]
     Indication: HIV INFECTION
     Route: 048
     Dates: start: 201103, end: 201205
  2. REYATAZ [Suspect]
     Indication: HIV INFECTION
     Route: 048
     Dates: start: 201103, end: 201205
  3. CAFFEINE [Suspect]
     Indication: MIGRAINE
     Dosage: 1 tab(s)
  4. ABACAVIR W/LAMIVUDINE [Suspect]
     Indication: HIV INFECTION
     Dosage: abacavir (600mg)/ lamivudine (300mg)
     Route: 048
     Dates: start: 201103, end: 201205
  5. AMITRIPTYLINE [Suspect]
     Indication: MIGRAINE
     Dosage: 1 tab(s)
  6. MEFENAMIC ACID [Suspect]
     Indication: MIGRAINE
     Dosage: 1 tab(s)
  7. CETRIZINE [Suspect]
     Indication: MIGRAINE
     Dosage: 1 tab(s)

REACTIONS (7)
  - Lactic acidosis [Recovered/Resolved]
  - Mononeuropathy multiplex [Recovering/Resolving]
  - Paraesthesia [Unknown]
  - Nausea [Unknown]
  - Malaise [Unknown]
  - Vomiting [Unknown]
  - Metabolic acidosis [Unknown]
